FAERS Safety Report 7403542-X (Version None)
Quarter: 2011Q2

REPORT INFORMATION
  Report Type: 
  Country: None (occurrence: None)
  Receive Date: 20110408
  Receipt Date: 20110328
  Transmission Date: 20111010
  Serious: Yes (Life-Threatening, Hospitalization, Disabling, Other)
  Sender: FDA-Public Use
  Company Number: US-MERCK-1102USA01922

PATIENT
  Age: 64 Year
  Sex: Male
  Weight: 158 kg

DRUGS (7)
  1. KETOCONAZOLE [Suspect]
     Route: 048
  2. FENOFIBRATE [Suspect]
     Route: 048
  3. LEVOTHYROXINE SODIUM [Suspect]
     Route: 048
  4. PREDNISONE [Suspect]
     Route: 048
  5. LEUPROLIDE ACETATE [Suspect]
     Route: 030
  6. VYTORIN [Suspect]
     Route: 048
  7. VERAPAMIL [Suspect]
     Route: 048

REACTIONS (5)
  - RHABDOMYOLYSIS [None]
  - RENAL FAILURE ACUTE [None]
  - DRUG INTERACTION [None]
  - HEPATOTOXICITY [None]
  - OFF LABEL USE [None]
